FAERS Safety Report 17127267 (Version 3)
Quarter: 2019Q4

REPORT INFORMATION
  Report Type: Spontaneous
  Country: IT (occurrence: IT)
  Receive Date: 20191209
  Receipt Date: 20191227
  Transmission Date: 20200122
  Serious: Yes (Hospitalization)
  Sender: FDA-Public Use
  Company Number: IT-TEVA-2019-IT-1149536

PATIENT
  Age: 60 Year
  Sex: Male

DRUGS (12)
  1. IRINOTECAN [Suspect]
     Active Substance: IRINOTECAN
     Indication: METASTASES TO LYMPH NODES
     Dosage: THIRD-LINE CHEMOTHERAPY ALONGSIDE CETUXIMAB FOLLOWING DISEASE PROGRESSION
     Route: 065
  2. FOLINIC ACID [Suspect]
     Active Substance: LEUCOVORIN
     Indication: COLORECTAL CANCER
     Dosage: SIX CYCLES OF FOLFIRI RECEIVED
     Route: 065
     Dates: start: 201402
  3. CETUXIMAB. [Suspect]
     Active Substance: CETUXIMAB
     Indication: COLORECTAL CANCER
     Dosage: THIRD-LINE CHEMOTHERAPY ALONGSIDE IRINOTECAN FOLLOWING DISEASE PROGRESSION
     Route: 065
  4. FLUOROURACIL. [Suspect]
     Active Substance: FLUOROURACIL
     Indication: METASTASES TO LIVER
  5. FLUOROURACIL. [Suspect]
     Active Substance: FLUOROURACIL
     Indication: METASTASES TO LUNG
  6. FLUOROURACIL. [Suspect]
     Active Substance: FLUOROURACIL
     Indication: COLORECTAL CANCER
     Dosage: SIX CYCLES OF FOLFIRI RECEIVED
     Route: 065
     Dates: start: 201402
  7. BEVACIZUMAB. [Suspect]
     Active Substance: BEVACIZUMAB
     Indication: COLORECTAL CANCER
     Dosage: SIX CYCLES RECEIVED
     Route: 065
     Dates: start: 201402
  8. FLUOROURACIL. [Suspect]
     Active Substance: FLUOROURACIL
     Indication: METASTASES TO LYMPH NODES
     Dosage: FOLFOX REGIMEN; REMISSION AFTER 11 CYCLES
     Route: 065
     Dates: start: 201511
  9. IRINOTECAN [Suspect]
     Active Substance: IRINOTECAN
     Indication: COLORECTAL CANCER
     Dosage: SIX CYCLES OF FOLFIRI RECEIVED
     Route: 065
     Dates: start: 201402
  10. OXALIPLATIN. [Suspect]
     Active Substance: OXALIPLATIN
     Indication: COLORECTAL CANCER
     Dosage: FOLFOX REGIMEN; REMISSION AFTER 11 CYCLES
     Route: 065
     Dates: start: 201511
  11. IRINOTECAN [Suspect]
     Active Substance: IRINOTECAN
     Indication: METASTASES TO LIVER
  12. IRINOTECAN [Suspect]
     Active Substance: IRINOTECAN
     Indication: METASTASES TO LUNG

REACTIONS (2)
  - Device related infection [Recovered/Resolved]
  - Bacteraemia [Recovered/Resolved]

NARRATIVE: CASE EVENT DATE: 20170411
